FAERS Safety Report 6946303-8 (Version None)
Quarter: 2010Q3

REPORT INFORMATION
  Report Type: 
  Country: None (occurrence: None)
  Receive Date: 20100827
  Receipt Date: 20100825
  Transmission Date: 20110219
  Serious: Yes (Death)
  Sender: FDA-Public Use
  Company Number: CH-ALLERGAN-1010753US

PATIENT
  Age: 53 Year
  Sex: Female

DRUGS (5)
  1. BOTOX [Suspect]
     Indication: MUSCLE SPASTICITY
     Dosage: 150 UNITS, SINGLE
     Route: 030
     Dates: start: 20100817, end: 20100817
  2. ZYPREXA [Concomitant]
  3. PAROXETINE HCL [Concomitant]
  4. ISOSOURCE [Concomitant]
     Indication: MEDICAL DIET
  5. BONIVA [Concomitant]

REACTIONS (2)
  - ASPHYXIA [None]
  - ASPIRATION [None]
